FAERS Safety Report 11374715 (Version 3)
Quarter: 2016Q1

REPORT INFORMATION
  Report Type: Spontaneous
  Country: US (occurrence: US)
  Receive Date: 20150813
  Receipt Date: 20160219
  Transmission Date: 20160525
  Serious: Yes (Hospitalization, Other)
  Sender: FDA-Public Use
  Company Number: US-AUROBINDO-AUR-APL-2015-07002

PATIENT
  Age: 24 Year
  Sex: Male

DRUGS (22)
  1. LEVETIRACETAM 1000MG [Suspect]
     Active Substance: LEVETIRACETAM
     Indication: SEIZURE
     Dosage: 1000 MG, TWO TIMES A DAY
     Route: 065
  2. VANCOMYCIN [Concomitant]
     Active Substance: VANCOMYCIN
     Indication: MENINGITIS
  3. VANCOMYCIN [Concomitant]
     Active Substance: VANCOMYCIN
     Indication: ENCEPHALITIS
  4. HEPARIN [Concomitant]
     Active Substance: HEPARIN SODIUM
     Indication: THROMBOPHLEBITIS SUPERFICIAL
     Route: 065
  5. LEVETIRACETAM 1000MG [Suspect]
     Active Substance: LEVETIRACETAM
     Dosage: 2000 MG, UNK
  6. ERTAPENEM [Concomitant]
     Active Substance: ERTAPENEM
     Indication: INFECTION
     Dosage: UNK
     Route: 065
  7. VANCOMYCIN [Concomitant]
     Active Substance: VANCOMYCIN
     Indication: INFECTION
  8. FLUCONAZOLE. [Concomitant]
     Active Substance: FLUCONAZOLE
     Indication: INFECTION
     Route: 065
  9. CEFEPIME [Concomitant]
     Active Substance: CEFEPIME HYDROCHLORIDE
     Indication: PRODUCT USED FOR UNKNOWN INDICATION
     Route: 065
  10. TOBRAMYCIN. [Concomitant]
     Active Substance: TOBRAMYCIN
     Indication: PSEUDOMONAS INFECTION
     Route: 065
  11. ACICLOVIR [Concomitant]
     Active Substance: ACYCLOVIR
     Indication: ENCEPHALITIS
     Dosage: UNK
     Route: 065
  12. ACICLOVIR [Concomitant]
     Active Substance: ACYCLOVIR
     Indication: MENINGITIS
  13. VANCOMYCIN [Concomitant]
     Active Substance: VANCOMYCIN
     Indication: MENINGITIS
     Route: 065
  14. LINEZOLID. [Concomitant]
     Active Substance: LINEZOLID
     Indication: PRODUCT USED FOR UNKNOWN INDICATION
     Route: 065
  15. DAPTOMYCIN. [Concomitant]
     Active Substance: DAPTOMYCIN
     Indication: PRODUCT USED FOR UNKNOWN INDICATION
     Route: 065
  16. LEVETIRACETAM 1000MG [Suspect]
     Active Substance: LEVETIRACETAM
     Dosage: 1000 MG, TWO TIMES A DAY
  17. GENTAMICIN. [Concomitant]
     Active Substance: GENTAMICIN
     Indication: INFECTION
     Route: 065
  18. MEROPENEM. [Concomitant]
     Active Substance: MEROPENEM
     Indication: PRODUCT USED FOR UNKNOWN INDICATION
     Route: 065
  19. CEFTRIAXONE. [Concomitant]
     Active Substance: CEFTRIAXONE
     Indication: ENCEPHALITIS
  20. METRONIDAZOLE. [Concomitant]
     Active Substance: METRONIDAZOLE
     Indication: PRODUCT USED FOR UNKNOWN INDICATION
     Route: 065
  21. MICAFUNGIN [Concomitant]
     Active Substance: MICAFUNGIN
     Indication: PANCREATIC PSEUDOCYST
     Route: 065
  22. CEFTRIAXONE. [Concomitant]
     Active Substance: CEFTRIAXONE
     Indication: MENINGITIS
     Dosage: UNK
     Route: 065

REACTIONS (3)
  - Pyrexia [Recovered/Resolved]
  - White blood cell count increased [Recovered/Resolved]
  - Eosinophilia [Recovered/Resolved]
